FAERS Safety Report 8908641 (Version 2)
Quarter: 2013Q2

REPORT INFORMATION
  Report Type: Report from Study
  Country: JP (occurrence: JP)
  Receive Date: 20121114
  Receipt Date: 20130604
  Transmission Date: 20140414
  Serious: Yes (Hospitalization)
  Sender: FDA-Public Use
  Company Number: JP-VERTEX PHARMACEUTICAL INC.-AE-2012-008843

PATIENT
  Age: 66 Year
  Sex: Male

DRUGS (8)
  1. VX-950 (TELAPREVIR) [Suspect]
     Indication: CHRONIC HEPATITIS C
     Dosage: 2250 MG, QD
     Route: 048
     Dates: start: 20120517, end: 20120519
  2. REBETOL [Suspect]
     Indication: CHRONIC HEPATITIS C
     Dosage: 800 MG, QD
     Route: 048
     Dates: start: 20120517, end: 20120519
  3. PEGINTRON [Suspect]
     Indication: CHRONIC HEPATITIS C
     Dosage: 1.5 ?G/KG, QW
     Route: 058
     Dates: start: 20120517, end: 20120519
  4. BLADDERON [Concomitant]
     Dosage: 600 MG, QD
     Route: 048
  5. ADALAT [Concomitant]
     Dosage: 20 MG, QD
     Route: 048
  6. BLOPRESS [Concomitant]
     Dosage: 8 MG, QD
     Route: 048
  7. URIEF [Concomitant]
     Dosage: 4 MG, QD
     Route: 048
  8. GASTER [Concomitant]
     Dosage: 20 MG, QD
     Route: 048
     Dates: end: 20120612

REACTIONS (1)
  - Renal failure acute [Recovered/Resolved]
